FAERS Safety Report 16881898 (Version 1)
Quarter: 2019Q4

REPORT INFORMATION
  Report Type: Spontaneous
  Country: US (occurrence: US)
  Receive Date: 20191003
  Receipt Date: 20191003
  Transmission Date: 20200122
  Serious: No
  Sender: FDA-Public Use
  Company Number: US-ASTRAZENECA-2019SF27162

PATIENT
  Sex: Male

DRUGS (1)
  1. BYDUREON BCISE [Suspect]
     Active Substance: EXENATIDE
     Dosage: 2.0UG UNKNOWN
     Route: 065

REACTIONS (5)
  - Device use issue [Unknown]
  - Injection site haemorrhage [Unknown]
  - Device leakage [Unknown]
  - Needle track marks [Unknown]
  - Product dose omission [Unknown]
